FAERS Safety Report 15705032 (Version 2)
Quarter: 2019Q1

REPORT INFORMATION
  Report Type: Spontaneous
  Country: US (occurrence: US)
  Receive Date: 20181210
  Receipt Date: 20190219
  Transmission Date: 20190417
  Serious: Yes (Other)
  Sender: FDA-Public Use
  Company Number: US-SA-2018SA334564

PATIENT
  Age: 59 Year
  Sex: Female

DRUGS (19)
  1. VITAMIN D3 [Concomitant]
     Active Substance: CHOLECALCIFEROL
     Dosage: UNK
  2. TAXOTERE [Suspect]
     Active Substance: DOCETAXEL
     Dosage: UNK
     Route: 042
     Dates: start: 20111007, end: 20111007
  3. METOPROLOL. [Concomitant]
     Active Substance: METOPROLOL
  4. LEVEMIR [Concomitant]
     Active Substance: INSULIN DETEMIR
  5. RANEXA [Concomitant]
     Active Substance: RANOLAZINE
     Dosage: UNK
  6. ANASTROZOLE. [Concomitant]
     Active Substance: ANASTROZOLE
  7. VICTOZA [Concomitant]
     Active Substance: LIRAGLUTIDE
  8. VALIUM [Concomitant]
     Active Substance: DIAZEPAM
     Dosage: UNK
  9. MIRAPEX [Concomitant]
     Active Substance: PRAMIPEXOLE DIHYDROCHLORIDE
  10. LUMIGAN [Concomitant]
     Active Substance: BIMATOPROST
  11. DILTIAZEM. [Concomitant]
     Active Substance: DILTIAZEM
  12. LEVOTHYROXIN [Concomitant]
     Active Substance: LEVOTHYROXINE
  13. ATORVASTATIN [Concomitant]
     Active Substance: ATORVASTATIN
     Dosage: UNK
  14. PROTONIX [Concomitant]
     Active Substance: PANTOPRAZOLE SODIUM
  15. HUMALOG [Concomitant]
     Active Substance: INSULIN LISPRO
  16. ELIQUIS [Concomitant]
     Active Substance: APIXABAN
     Dosage: UNK
  17. TAXOTERE [Suspect]
     Active Substance: DOCETAXEL
     Indication: BREAST CANCER FEMALE
     Dosage: 120 MG, Q3W
     Route: 042
     Dates: start: 20110624, end: 20110624
  18. EZETIMIBE. [Concomitant]
     Active Substance: EZETIMIBE
  19. ASPRIN [Concomitant]
     Active Substance: ASPIRIN

REACTIONS (2)
  - Psychological trauma [Unknown]
  - Alopecia [Not Recovered/Not Resolved]

NARRATIVE: CASE EVENT DATE: 20120101
